FAERS Safety Report 20889165 (Version 1)
Quarter: 2022Q2

REPORT INFORMATION
  Report Type: Spontaneous
  Country: US (occurrence: US)
  Receive Date: 20220530
  Receipt Date: 20220530
  Transmission Date: 20220721
  Serious: No
  Sender: FDA-Public Use
  Company Number: US-drreddys-SPO/USA/22/0150050

PATIENT
  Age: 33 Year

DRUGS (2)
  1. ACCUTANE [Suspect]
     Active Substance: ISOTRETINOIN
     Indication: Acne cystic
     Dosage: RMA ISSUE DATE: 28 FEBRUARY 2022 01:34:58 PM, 25 JANUARY 2022 04:16:51 PM, 22 DECEMBER 2021 12:51:51
  2. ACCUTANE [Suspect]
     Active Substance: ISOTRETINOIN
     Dosage: RMA ISSUE DATE: 05 APRIL 2022 06:09:21 PM

REACTIONS (1)
  - Dry skin [Unknown]
